FAERS Safety Report 7801675-7 (Version None)
Quarter: 2011Q4

REPORT INFORMATION
  Report Type: 
  Country: None (occurrence: None)
  Receive Date: 20111007
  Receipt Date: 20110926
  Transmission Date: 20120403
  Serious: No
  Sender: FDA-Public Use
  Company Number: US-B.I. PHARMACEUTICALS,INC./RIDGEFIELD-2011-BP-23553BP

PATIENT
  Sex: Female

DRUGS (6)
  1. COMBIVENT [Concomitant]
     Indication: ASTHMA
     Dosage: 8 PUF
     Route: 055
     Dates: start: 19800101
  2. HYOSCYAMINE [Concomitant]
     Indication: IRRITABLE BOWEL SYNDROME
  3. SYNTHROID [Concomitant]
     Indication: HYPOTHYROIDISM
  4. LEXAPRO [Concomitant]
     Indication: PREMENSTRUAL SYNDROME
  5. LEXAPRO [Concomitant]
     Indication: DEPRESSION
  6. SPIRIVA [Suspect]
     Indication: CHRONIC OBSTRUCTIVE PULMONARY DISEASE
     Dosage: 18 MCG
     Route: 055
     Dates: start: 20090101

REACTIONS (4)
  - ASTHMA [None]
  - DRUG INEFFECTIVE [None]
  - BRONCHITIS [None]
  - SINUSITIS [None]
